FAERS Safety Report 9546602 (Version 1)
Quarter: 2013Q3

REPORT INFORMATION
  Report Type: Spontaneous
  Country: US (occurrence: US)
  Receive Date: 20130924
  Receipt Date: 20130924
  Transmission Date: 20140515
  Serious: No
  Sender: FDA-Public Use
  Company Number: US-009507513-1309USA002492

PATIENT
  Age: 51 Year
  Sex: Male

DRUGS (3)
  1. ZETIA [Suspect]
     Indication: BLOOD CHOLESTEROL INCREASED
     Dosage: 10 MG / EVERY DAY
     Route: 048
     Dates: start: 2002, end: 2008
  2. ZETIA [Suspect]
     Dosage: 10 MG / EVERY DAY
     Route: 048
  3. PRAVACHOL [Concomitant]

REACTIONS (2)
  - Myalgia [Recovered/Resolved]
  - Myalgia [Recovered/Resolved]
